FAERS Safety Report 4782261-2 (Version None)
Quarter: 2005Q3

REPORT INFORMATION
  Report Type: 
  Country: None (occurrence: None)
  Receive Date: 20050914
  Receipt Date: 20040805
  Transmission Date: 20060218
  Serious: Yes (Hospitalization)
  Sender: FDA-Public Use
  Company Number: 163-20785-04080153

PATIENT
  Age: 56 Year
  Sex: Female
  Weight: 60.9634 kg

DRUGS (8)
  1. THALOMID [Suspect]
     Indication: RENAL CELL CARCINOMA STAGE UNSPECIFIED
     Dosage: 200 MG, QD, ORAL
     Route: 047
     Dates: start: 20040412, end: 20040802
  2. PROCRIT [Suspect]
     Indication: RENAL CELL CARCINOMA STAGE UNSPECIFIED
     Dosage: 40,000 UNITS, Q WEEKLY, SUBCUTANEOUS
     Route: 058
     Dates: start: 20040412, end: 20040802
  3. PREMPRO 14/14 [Concomitant]
  4. COMPAZINE [Concomitant]
  5. CLARITIN [Concomitant]
  6. MEGACE [Concomitant]
  7. ELAVIL [Concomitant]
  8. PERCOCET [Concomitant]

REACTIONS (1)
  - OEDEMA PERIPHERAL [None]
